FAERS Safety Report 9442435 (Version 2)
Quarter: 2013Q3

REPORT INFORMATION
  Report Type: Spontaneous
  Country: DK (occurrence: JP)
  Receive Date: 20130806
  Receipt Date: 20130820
  Transmission Date: 20140515
  Serious: Yes (Other)
  Sender: FDA-Public Use
  Company Number: JP-FRI-1000047441

PATIENT
  Sex: Female

DRUGS (7)
  1. LEXAPRO [Suspect]
     Indication: DEPRESSION
     Dosage: 10 MG
     Route: 048
     Dates: start: 20130618
  2. PAXIL [Concomitant]
     Indication: DEPRESSION
     Dosage: 3 DF
     Route: 048
  3. PAXIL [Concomitant]
     Dosage: 2 DF
     Route: 048
     Dates: end: 20130617
  4. PAXIL [Concomitant]
     Dosage: 1 DF
     Route: 048
     Dates: start: 20130618
  5. LIMAS [Concomitant]
     Route: 048
  6. LEXOTAN [Concomitant]
     Route: 048
  7. HYPNOTICS AND SEDATIVES, ANTIANXIETICS [Concomitant]

REACTIONS (3)
  - Suicide attempt [Recovering/Resolving]
  - Memory impairment [Recovering/Resolving]
  - Agitation [Recovering/Resolving]
